FAERS Safety Report 9854131 (Version 33)
Quarter: 2016Q3

REPORT INFORMATION
  Report Type: Report from Study
  Country: CA (occurrence: CA)
  Receive Date: 20140129
  Receipt Date: 20160923
  Transmission Date: 20161109
  Serious: Yes (Other)
  Sender: FDA-Public Use
  Company Number: CA-ROCHE-1161332

PATIENT
  Age: 72 Year
  Sex: Female
  Weight: 99 kg

DRUGS (13)
  1. SULFASALAZINE. [Concomitant]
     Active Substance: SULFASALAZINE
  2. LIPITOR [Suspect]
     Active Substance: ATORVASTATIN CALCIUM
     Indication: BLOOD CHOLESTEROL INCREASED
     Route: 065
  3. PAROXETINE. [Concomitant]
     Active Substance: PAROXETINE
  4. ACTEMRA [Suspect]
     Active Substance: TOCILIZUMAB
     Indication: RHEUMATOID ARTHRITIS
     Route: 042
     Dates: start: 20121025
  5. XANAX [Concomitant]
     Active Substance: ALPRAZOLAM
  6. TYLENOL ARTHRITIS PAIN [Concomitant]
     Active Substance: ACETAMINOPHEN
     Indication: ARTHRITIS
  7. ALENDRONATE [Suspect]
     Active Substance: ALENDRONATE SODIUM
     Indication: PRODUCT USED FOR UNKNOWN INDICATION
     Route: 065
     Dates: start: 2015
  8. PRAVASTATIN. [Concomitant]
     Active Substance: PRAVASTATIN
     Route: 048
     Dates: start: 2013
  9. PRO-HYDROXYQUINE [Concomitant]
  10. IBUPROFENE [Concomitant]
     Active Substance: IBUPROFEN
  11. ACTEMRA [Suspect]
     Active Substance: TOCILIZUMAB
     Route: 042
     Dates: start: 20130214
  12. ACTEMRA [Suspect]
     Active Substance: TOCILIZUMAB
     Route: 042
     Dates: start: 20131022
  13. ALPRAZOLAM. [Concomitant]
     Active Substance: ALPRAZOLAM

REACTIONS (51)
  - Electrocardiogram abnormal [Unknown]
  - Osteoporosis [Unknown]
  - Musculoskeletal pain [Unknown]
  - Pain [Not Recovered/Not Resolved]
  - Blood pressure systolic increased [Unknown]
  - Hepatic steatosis [Unknown]
  - Hyperhidrosis [Not Recovered/Not Resolved]
  - Rash generalised [Unknown]
  - Headache [Unknown]
  - Hypotension [Unknown]
  - Pruritus [Not Recovered/Not Resolved]
  - Diarrhoea [Unknown]
  - Poor dental condition [Unknown]
  - Oxygen saturation decreased [Unknown]
  - Heart rate increased [Unknown]
  - Injection site bruising [Not Recovered/Not Resolved]
  - Pain [Not Recovered/Not Resolved]
  - Rash [Not Recovered/Not Resolved]
  - Chromaturia [Not Recovered/Not Resolved]
  - Fall [Unknown]
  - Infusion related reaction [Unknown]
  - Blood pressure increased [Unknown]
  - Pruritus [Recovered/Resolved]
  - Pruritus generalised [Recovered/Resolved]
  - Oxygen saturation decreased [Unknown]
  - Cholelithiasis [Not Recovered/Not Resolved]
  - Joint swelling [Not Recovered/Not Resolved]
  - Weight decreased [Not Recovered/Not Resolved]
  - Haemorrhoids [Recovering/Resolving]
  - Back pain [Recovering/Resolving]
  - Heart rate increased [Unknown]
  - Blood cholesterol increased [Unknown]
  - Blood pressure increased [Not Recovered/Not Resolved]
  - Gastric disorder [Recovered/Resolved]
  - Weight increased [Unknown]
  - Rheumatoid arthritis [Recovering/Resolving]
  - Ligament sprain [Unknown]
  - Pain [Unknown]
  - Arthralgia [Not Recovered/Not Resolved]
  - Influenza [Not Recovered/Not Resolved]
  - Fungal infection [Recovered/Resolved]
  - Pain in extremity [Not Recovered/Not Resolved]
  - Arthropathy [Not Recovered/Not Resolved]
  - Peripheral swelling [Not Recovered/Not Resolved]
  - Malaise [Unknown]
  - Agitation [Unknown]
  - Arthralgia [Not Recovered/Not Resolved]
  - Nasopharyngitis [Recovered/Resolved]
  - Heart rate decreased [Unknown]
  - Arthralgia [Unknown]
  - Drug effect decreased [Unknown]

NARRATIVE: CASE EVENT DATE: 20121126
